FAERS Safety Report 12236091 (Version 6)
Quarter: 2017Q1

REPORT INFORMATION
  Report Type: Report from Study
  Country: JP (occurrence: JP)
  Receive Date: 20160404
  Receipt Date: 20170209
  Transmission Date: 20170428
  Serious: Yes (Disabling)
  Sender: FDA-Public Use
  Company Number: JP-PFIZER INC-2016188952

PATIENT
  Age: 16 Year
  Sex: Female

DRUGS (10)
  1. GENOTROPIN GOQUICK [Suspect]
     Active Substance: SOMATROPIN
     Dosage: 10.8 MG, WEEKLY (SIX TIMES A WEEK)
     Dates: start: 20120203, end: 20120517
  2. GENOTROPIN GOQUICK [Suspect]
     Active Substance: SOMATROPIN
     Dosage: 9 MG, WEEKLY (SIX TIMES A WEEK)
     Dates: start: 20111021, end: 20120202
  3. GENOTROPIN GOQUICK [Suspect]
     Active Substance: SOMATROPIN
     Dosage: 12.6 MG, WEEKLY
     Dates: start: 20120518, end: 20120830
  4. GENOTROPIN GOQUICK [Suspect]
     Active Substance: SOMATROPIN
     Dosage: 14.4 MG, WEEKLY (SIX TIMES A WEEK)
     Dates: start: 20130301, end: 20130620
  5. GENOTROPIN GOQUICK [Suspect]
     Active Substance: SOMATROPIN
     Dosage: 16.2 MG, WEEKLY (SIX TIMES A WEEK)
     Dates: start: 20130621, end: 20140130
  6. GENOTROPIN GOQUICK [Suspect]
     Active Substance: SOMATROPIN
     Dosage: 17.1 MG, WEEKLY (SIX TIMES A WEEK)
     Dates: start: 20140131
  7. GENOTROPIN GOQUICK [Suspect]
     Active Substance: SOMATROPIN
     Dosage: 6 MG, WEEKLY (SIX TIMES A WEEK)
     Dates: start: 20100215, end: 20100916
  8. GENOTROPIN GOQUICK [Suspect]
     Active Substance: SOMATROPIN
     Dosage: 7.2 MG, WEEKLY (SIX TIMES A WEEK)
     Dates: start: 20100917
  9. GENOTROPIN GOQUICK [Suspect]
     Active Substance: SOMATROPIN
     Dosage: 13.5 MG, WEEKLY (SIX TIMES A WEEK)
     Dates: start: 20120831, end: 20130228
  10. GENOTROPIN GOQUICK [Suspect]
     Active Substance: SOMATROPIN
     Dosage: UNK
     Dates: start: 20140523, end: 20150320

REACTIONS (1)
  - Scoliosis [Not Recovered/Not Resolved]

NARRATIVE: CASE EVENT DATE: 20150320
